FAERS Safety Report 10486018 (Version 1)
Quarter: 2014Q4

REPORT INFORMATION
  Report Type: Report from Study
  Country: US (occurrence: US)
  Receive Date: 20141001
  Receipt Date: 20141001
  Transmission Date: 20150528
  Serious: No
  Sender: FDA-Public Use
  Company Number: US-009507513-1208USA001305

PATIENT
  Age: 47 Year
  Sex: Female

DRUGS (3)
  1. REBETOL [Suspect]
     Active Substance: RIBAVIRIN
     Dosage: 1000.00 MG, QD
     Dates: start: 20090302, end: 201002
  2. PEGINTRON [Suspect]
     Active Substance: PEGINTERFERON ALFA-2B
     Dosage: 120 MICROGRAM, QW
     Dates: start: 20090302, end: 201002
  3. VITAMINS (UNSPECIFIED) [Concomitant]
     Active Substance: VITAMINS
     Indication: PREGNANCY

REACTIONS (1)
  - Exposure during pregnancy [Recovered/Resolved]
